FAERS Safety Report 11058480 (Version 1)
Quarter: 2015Q2

REPORT INFORMATION
  Report Type: Report from Study
  Country: US (occurrence: None)
  Receive Date: 20150420
  Receipt Date: 20150420
  Transmission Date: 20150821
  Serious: No
  Sender: FDA-Public Use
  Company Number: AEGR001086

PATIENT
  Age: 66 Year
  Sex: Female
  Weight: 56.2 kg

DRUGS (1)
  1. JUXTAPID [Suspect]
     Active Substance: LOMITAPIDE MESYLATE
     Indication: TYPE IIA HYPERLIPIDAEMIA
     Dosage: 5 MG, QD, ORAL
     Route: 048
     Dates: start: 20140814, end: 201501

REACTIONS (2)
  - Therapy cessation [None]
  - Epistaxis [None]

NARRATIVE: CASE EVENT DATE: 201412
